FAERS Safety Report 17411583 (Version 1)
Quarter: 2020Q1

REPORT INFORMATION
  Report Type: Spontaneous
  Country: US (occurrence: US)
  Receive Date: 20200129
  Receipt Date: 20200129
  Transmission Date: 20200409
  Serious: Yes (Death)
  Sender: FDA-Public Use
  Company Number: None

PATIENT
  Sex: Female

DRUGS (15)
  1. ALPROAZOLAM [Concomitant]
  2. ESCITALOPRAM [Concomitant]
     Active Substance: ESCITALOPRAM OXALATE
  3. METOPROLOL TARTRATE. [Concomitant]
     Active Substance: METOPROLOL TARTRATE
  4. ATROPINE SUL SOL [Concomitant]
  5. HALOPERIDOL. [Concomitant]
     Active Substance: HALOPERIDOL
  6. SPIRONOLACTONE. [Concomitant]
     Active Substance: SPIRONOLACTONE
  7. FUROSEMIDE. [Concomitant]
     Active Substance: FUROSEMIDE
  8. METHENAM HIP [Concomitant]
  9. MORPHINE SUL SOL [Concomitant]
  10. TRAZODONE [Concomitant]
     Active Substance: TRAZODONE HYDROCHLORIDE
  11. REPATHA [Suspect]
     Active Substance: EVOLOCUMAB
     Indication: TYPE IIA HYPERLIPIDAEMIA
     Dosage: ?          OTHER FREQUENCY:Q14DAYS;?
     Route: 058
     Dates: start: 20180131
  12. LORAZEPAM. [Concomitant]
     Active Substance: LORAZEPAM
  13. LIDOCAINE. [Concomitant]
     Active Substance: LIDOCAINE
  14. POT CL MICRO [Concomitant]
  15. QUETIAPINE. [Concomitant]
     Active Substance: QUETIAPINE

REACTIONS (1)
  - Death [None]
